FAERS Safety Report 7216256-6 (Version None)
Quarter: 2011Q1

REPORT INFORMATION
  Report Type: 
  Country: None (occurrence: None)
  Receive Date: 20110107
  Receipt Date: 20101115
  Transmission Date: 20110831
  Serious: Yes (Hospitalization, Other)
  Sender: FDA-Public Use
  Company Number: US-BAYER-200944079NA

PATIENT
  Sex: Female
  Weight: 123 kg

DRUGS (9)
  1. HYDROCODONE BITARTRATE AND ACETAMINOPHEN [Concomitant]
     Route: 048
  2. OXYCET [Concomitant]
  3. YASMIN [Suspect]
     Dosage: UNK
     Route: 048
     Dates: start: 20070311, end: 20071204
  4. PERCOCET [Concomitant]
  5. YASMIN [Suspect]
     Dosage: UNK
     Route: 048
     Dates: start: 20050322, end: 20060525
  6. HYDROCODONE BITARTRATE AND ACETAMINOPHEN [Concomitant]
     Route: 048
  7. YAZ [Suspect]
     Route: 048
  8. TERBINAFINE HCL [Concomitant]
     Dosage: 1TAB DAILY X 6 WEEKS
     Route: 048
  9. OXYCODONE HCL AND ACETAMINOPHEN [Concomitant]
     Dosage: 5 MG/325 MG 1-2 TABS EVERY 4 HOURS PRN
     Route: 048

REACTIONS (7)
  - CHOLELITHIASIS [None]
  - NAUSEA [None]
  - ABDOMINAL TENDERNESS [None]
  - PREGNANCY [None]
  - ABDOMINAL PAIN [None]
  - ABDOMINAL PAIN UPPER [None]
  - FOETAL HYPOKINESIA [None]
